FAERS Safety Report 4659101-5 (Version None)
Quarter: 2005Q2

REPORT INFORMATION
  Report Type: 
  Country: None (occurrence: None)
  Receive Date: 20050509
  Receipt Date: 20050429
  Transmission Date: 20051028
  Serious: Yes (Death)
  Sender: FDA-Public Use
  Company Number: 200511069GDS

PATIENT
  Age: 78 Year
  Sex: Female

DRUGS (10)
  1. ASPIRIN [Suspect]
     Dosage: 100 MG, QD, ORAL
     Route: 048
     Dates: end: 20050401
  2. NITRODERM [Suspect]
  3. TORSEMIDE [Concomitant]
  4. MAGNESIUM DIASPORAL [Concomitant]
  5. CORDARONE [Concomitant]
  6. SERESTA [Concomitant]
  7. DAFALGAN [Concomitant]
  8. BELOC ZOK [Concomitant]
  9. LASIX [Concomitant]
  10. ENATEC [Concomitant]

REACTIONS (6)
  - BLOOD PRESSURE SYSTOLIC INCREASED [None]
  - CARDIAC MURMUR [None]
  - CEREBRAL HAEMORRHAGE [None]
  - FALL [None]
  - HEART RATE DECREASED [None]
  - VENTRICULAR EXTRASYSTOLES [None]
